FAERS Safety Report 14203146 (Version 1)
Quarter: 2017Q4

REPORT INFORMATION
  Report Type: Spontaneous
  Country: US (occurrence: US)
  Receive Date: 20171120
  Receipt Date: 20171120
  Transmission Date: 20180321
  Serious: No
  Sender: FDA-Public Use
  Company Number: US-ALVOGEN-2016-ALVOGEN-029861

PATIENT
  Sex: Female

DRUGS (3)
  1. LISINOPRIL. [Suspect]
     Active Substance: LISINOPRIL
     Indication: PRODUCT USED FOR UNKNOWN INDICATION
     Route: 048
  2. CLONIDINE. [Concomitant]
     Active Substance: CLONIDINE
     Indication: PRODUCT USED FOR UNKNOWN INDICATION
  3. IRESSA [Suspect]
     Active Substance: GEFITINIB
     Indication: LUNG NEOPLASM MALIGNANT
     Route: 048
     Dates: start: 20160115

REACTIONS (20)
  - Diarrhoea [Unknown]
  - Vulvovaginal swelling [Unknown]
  - Vulvovaginal pain [Unknown]
  - Decreased appetite [Unknown]
  - Skin lesion [Unknown]
  - Dry eye [Unknown]
  - Pruritus [Unknown]
  - Vulvovaginal pruritus [Unknown]
  - Somnolence [Unknown]
  - Dysuria [Unknown]
  - Eye pruritus [Unknown]
  - Dry mouth [Unknown]
  - Visual impairment [Unknown]
  - Nausea [Unknown]
  - Vomiting [Unknown]
  - Memory impairment [Unknown]
  - Eye disorder [Unknown]
  - Pain in extremity [Unknown]
  - Abdominal pain upper [Unknown]
  - Infection [Unknown]
